FAERS Safety Report 5446350-1 (Version None)
Quarter: 2007Q3

REPORT INFORMATION
  Report Type: 
  Country: None (occurrence: None)
  Receive Date: 20070907
  Receipt Date: 20070829
  Transmission Date: 20080115
  Serious: Yes (Other)
  Sender: FDA-Public Use
  Company Number: B0373387A

PATIENT
  Age: 38 Year
  Sex: Female

DRUGS (1)
  1. PAROXETINE [Suspect]
     Indication: OBSESSIVE-COMPULSIVE DISORDER
     Dosage: 30MG PER DAY
     Route: 048
     Dates: end: 20041109

REACTIONS (2)
  - ABORTION THREATENED [None]
  - DELIVERY [None]
